FAERS Safety Report 7612379-8 (Version None)
Quarter: 2011Q3

REPORT INFORMATION
  Report Type: 
  Country: None (occurrence: None)
  Receive Date: 20110716
  Receipt Date: 20110707
  Transmission Date: 20111222
  Serious: Yes (Hospitalization, Other)
  Sender: FDA-Public Use
  Company Number: US-RB-030150-11

PATIENT
  Age: 31 Year
  Sex: Female

DRUGS (12)
  1. PROTONIXS [Concomitant]
     Indication: GASTROINTESTINAL DISORDER
     Dosage: DOSING INFORMATION UNKNOWN
     Route: 065
  2. SUBOXONE [Suspect]
     Indication: DRUG DEPENDENCE
     Route: 060
     Dates: start: 20091001, end: 20100101
  3. SUBOXONE [Suspect]
     Indication: DRUG DEPENDENCE
     Dosage: SUBLINGUAL FILM/TAKING BETWEEN 12-16 MG DAILY
     Route: 060
     Dates: start: 20110401
  4. B-12 PILLS [Concomitant]
     Indication: ASTHENIA
     Route: 065
  5. MOTRIN [Concomitant]
     Indication: PAIN
     Route: 065
  6. INDERAL [Concomitant]
     Indication: MIGRAINE
     Dosage: DOSING INFORMATION UNKNOWN
     Route: 065
  7. B-12 PILLS [Concomitant]
     Indication: HAEMOGLOBIN DECREASED
     Route: 065
  8. MAGNESIUM [Concomitant]
     Indication: BLOOD MAGNESIUM DECREASED
     Dosage: DOSING INFORMATION UNKNOWN
     Route: 065
  9. SUBOXONE [Suspect]
     Route: 060
     Dates: start: 20100401, end: 20110101
  10. SUBOXONE [Suspect]
     Route: 060
     Dates: start: 20100101, end: 20100101
  11. SUBOXONE [Suspect]
     Dosage: GRADUAL DECREASE TO 4 MG
     Route: 060
     Dates: start: 20100101, end: 20100401
  12. SUBOXONE [Suspect]
     Dosage: SUBLINGUAL FILM
     Route: 060
     Dates: start: 20110101, end: 20110401

REACTIONS (6)
  - ENDOMETRIOSIS [None]
  - THYROID CANCER [None]
  - DRUG WITHDRAWAL SYNDROME [None]
  - PANIC ATTACK [None]
  - CONDITION AGGRAVATED [None]
  - WRONG TECHNIQUE IN DRUG USAGE PROCESS [None]
